FAERS Safety Report 13176236 (Version 2)
Quarter: 2017Q1

REPORT INFORMATION
  Report Type: Report from Study
  Country: IL (occurrence: IL)
  Receive Date: 20170201
  Receipt Date: 20170209
  Transmission Date: 20170428
  Serious: Yes (Hospitalization)
  Sender: FDA-Public Use
  Company Number: IL-ASTRAZENECA-2017SE09739

PATIENT
  Age: 22305 Day
  Sex: Male

DRUGS (12)
  1. MEDI4736 [Suspect]
     Active Substance: DURVALUMAB
     Indication: SMALL CELL LUNG CANCER
     Route: 042
     Dates: start: 20170110
  2. RECLAST [Concomitant]
     Active Substance: ZOLEDRONIC ACID
     Indication: METASTASES TO BONE
     Route: 042
     Dates: start: 20160710
  3. TRAMADOL. [Concomitant]
     Active Substance: TRAMADOL
     Indication: PAIN
     Route: 048
     Dates: start: 20161115
  4. ZALDIAR [Concomitant]
     Active Substance: ACETAMINOPHEN\TRAMADOL HYDROCHLORIDE
     Indication: PAIN
     Dosage: 37.5 MG BID
     Route: 048
     Dates: start: 20161115
  5. CLEXAN [Concomitant]
     Indication: ANTICOAGULANT THERAPY
     Route: 058
  6. OLAPARIB [Suspect]
     Active Substance: OLAPARIB
     Indication: SMALL CELL LUNG CANCER
     Route: 048
     Dates: start: 20161215
  7. ESOMEPRAZOLE-NEXIUM [Concomitant]
     Indication: PEPTIC ULCER
     Route: 042
  8. CARDILOC [Concomitant]
     Active Substance: BISOPROLOL FUMARATE
     Indication: HYPERTENSION
     Route: 048
  9. MAGNESIUM [Concomitant]
     Active Substance: MAGNESIUM
     Indication: NUTRITIONAL SUPPLEMENTATION
     Route: 048
  10. PRAMIN [Concomitant]
     Indication: NAUSEA
     Dosage: 10.0MG AS REQUIRED
     Route: 048
     Dates: start: 20161220
  11. PARACETAMOL [Concomitant]
     Active Substance: ACETAMINOPHEN
     Indication: PAIN
     Dosage: 500.0MG AS REQUIRED
     Route: 048
     Dates: start: 20161115
  12. RELVAR ELLIPTA [Concomitant]
     Active Substance: FLUTICASONE FUROATE\VILANTEROL TRIFENATATE
     Indication: DYSPNOEA
     Route: 065

REACTIONS (1)
  - Pneumonia [Recovered/Resolved]

NARRATIVE: CASE EVENT DATE: 20170118
